FAERS Safety Report 7712693-1 (Version None)
Quarter: 2011Q3

REPORT INFORMATION
  Report Type: 
  Country: None (occurrence: None)
  Receive Date: 20110826
  Receipt Date: 20110817
  Transmission Date: 20111222
  Serious: Yes (Other)
  Sender: FDA-Public Use
  Company Number: PHHY2011SK73971

PATIENT
  Sex: Female

DRUGS (2)
  1. TASIGNA [Suspect]
     Indication: CHRONIC MYELOID LEUKAEMIA
     Dosage: 800 MG, DAILY
     Route: 048
     Dates: start: 20101216
  2. TASIGNA [Suspect]
     Dosage: 800 MG, DAILY
     Route: 048

REACTIONS (2)
  - SELECTIVE ABORTION [None]
  - MATERNAL EXPOSURE DURING PREGNANCY [None]
